FAERS Safety Report 17291762 (Version 1)
Quarter: 2020Q1

REPORT INFORMATION
  Report Type: Spontaneous
  Country: US (occurrence: US)
  Receive Date: 20200118
  Receipt Date: 20200118
  Transmission Date: 20200409
  Serious: Yes (Life-Threatening, Hospitalization, Other)
  Sender: FDA-Public Use
  Company Number: None

PATIENT
  Age: 16 Year
  Sex: Female

DRUGS (1)
  1. BACTRIM [Suspect]
     Active Substance: SULFAMETHOXAZOLE\TRIMETHOPRIM
     Indication: ACNE
     Route: 048
     Dates: start: 19970825, end: 19970912

REACTIONS (10)
  - Lung infiltration [None]
  - Tachypnoea [None]
  - Hypoxia [None]
  - Pyrexia [None]
  - Dyspnoea [None]
  - Cough [None]
  - Tachycardia [None]
  - Chills [None]
  - Respiratory distress [None]
  - Pneumothorax [None]

NARRATIVE: CASE EVENT DATE: 19970914
